FAERS Safety Report 17185265 (Version 1)
Quarter: 2019Q4

REPORT INFORMATION
  Report Type: Spontaneous
  Country: US (occurrence: US)
  Receive Date: 20191220
  Receipt Date: 20191220
  Transmission Date: 20200122
  Serious: No
  Sender: FDA-Public Use
  Company Number: US-THERAPEUTICSMD-2019TMD04093

PATIENT
  Sex: Female
  Weight: 81.63 kg

DRUGS (11)
  1. ^LOW BYERS^ ASPIRIN [Concomitant]
  2. IRON [Concomitant]
     Active Substance: IRON
  3. OMEPRAZOLE. [Concomitant]
     Active Substance: OMEPRAZOLE
  4. FLUOXETINE [Concomitant]
     Active Substance: FLUOXETINE HYDROCHLORIDE
  5. ATORVASTATIN [Concomitant]
     Active Substance: ATORVASTATIN
  6. LORATADINE. [Concomitant]
     Active Substance: LORATADINE
     Dosage: UNK
  7. IMVEXXY [Suspect]
     Active Substance: ESTRADIOL
     Indication: MENOPAUSE
     Dosage: 4 ?G, 2X/WEEK MONDAY AND THURSDAY IN THE MORNING TIME
     Route: 067
     Dates: start: 201909
  8. LOSARTAN. [Concomitant]
     Active Substance: LOSARTAN
  9. METOPROLOL. [Concomitant]
     Active Substance: METOPROLOL
  10. PREDNISONE. [Concomitant]
     Active Substance: PREDNISONE
  11. NITROGLYCERIN. [Concomitant]
     Active Substance: NITROGLYCERIN
     Dosage: UNK ?G

REACTIONS (2)
  - Hyperhidrosis [Not Recovered/Not Resolved]
  - Off label use [Not Recovered/Not Resolved]

NARRATIVE: CASE EVENT DATE: 2019
